FAERS Safety Report 6020216-0 (Version None)
Quarter: 2008Q4

REPORT INFORMATION
  Report Type: 
  Country: None (occurrence: None)
  Receive Date: 20081223
  Receipt Date: 20081223
  Transmission Date: 20090506
  Serious: Yes (Hospitalization, Other)
  Sender: FDA-Public Use
  Company Number: None

PATIENT
  Age: 32 Year
  Sex: Female
  Weight: 122.4712 kg

DRUGS (1)
  1. WARFARIN SODIUM [Suspect]
     Indication: CARDIAC ABLATION
     Dosage: 1 1/2 1 A DAY
     Dates: start: 20080702, end: 20080807

REACTIONS (5)
  - CONTUSION [None]
  - PAIN IN EXTREMITY [None]
  - RASH [None]
  - SKIN BURNING SENSATION [None]
  - SKIN DISORDER [None]
